FAERS Safety Report 8112584-0 (Version None)
Quarter: 2012Q1

REPORT INFORMATION
  Report Type: 
  Country: None (occurrence: None)
  Receive Date: 20120203
  Receipt Date: 20120131
  Transmission Date: 20120608
  Serious: Yes (Hospitalization, Other)
  Sender: FDA-Public Use
  Company Number: US-PFIZER INC-2012026745

PATIENT
  Sex: Male

DRUGS (2)
  1. DEPO-MEDROL [Suspect]
     Indication: PAIN IN EXTREMITY
  2. DEPO-MEDROL [Suspect]
     Indication: STEROID THERAPY
     Dosage: UNK, 2X/DAY
     Route: 008
     Dates: start: 20020101, end: 20020101

REACTIONS (6)
  - MENINGEAL DISORDER [None]
  - PAIN [None]
  - INJECTION SITE EXTRAVASATION [None]
  - SENSORY DISTURBANCE [None]
  - INCORRECT ROUTE OF DRUG ADMINISTRATION [None]
  - ABASIA [None]
